FAERS Safety Report 9473792 (Version 2)
Quarter: 2013Q3

REPORT INFORMATION
  Report Type: Spontaneous
  Country: US (occurrence: US)
  Receive Date: 20130823
  Receipt Date: 20130823
  Transmission Date: 20140515
  Serious: No
  Sender: FDA-Public Use
  Company Number: US-BRISTOL-MYERS SQUIBB COMPANY-16998718

PATIENT
  Age: 62 Year
  Sex: Female
  Weight: 86.17 kg

DRUGS (10)
  1. SPRYCEL [Suspect]
     Indication: CHRONIC MYELOID LEUKAEMIA
     Dosage: 20 MG 1 TABS TWICE A DAY
     Route: 048
     Dates: start: 20120827, end: 20130429
  2. VITAMIN D [Concomitant]
     Dosage: 1DF: 1000UNIT
  3. RAMIPRIL [Concomitant]
     Dosage: CAPS
  4. PROTONIX [Concomitant]
     Dosage: TABS
  5. METOPROLOL [Concomitant]
     Dosage: TABS ER
  6. ASPIRIN [Concomitant]
     Dosage: TABS
  7. NIASPAN [Concomitant]
     Dosage: TABS ER
  8. HYDROCHLOROTHIAZIDE [Concomitant]
  9. AMBIEN [Concomitant]
  10. LOMOTIL [Concomitant]

REACTIONS (5)
  - Anaemia [Unknown]
  - Diarrhoea [Not Recovered/Not Resolved]
  - Nausea [Not Recovered/Not Resolved]
  - Arthralgia [Unknown]
  - Dyspnoea [Unknown]
